FAERS Safety Report 19777739 (Version 2)
Quarter: 2021Q3

REPORT INFORMATION
  Report Type: Spontaneous
  Country: US (occurrence: US)
  Receive Date: 20210902
  Receipt Date: 20210930
  Transmission Date: 20211014
  Serious: Yes (Other)
  Sender: FDA-Public Use
  Company Number: US-AUROBINDO-AUR-APL-2021-037298

PATIENT
  Age: 67 Year
  Sex: Female

DRUGS (6)
  1. BUPIVACAINE HYDROCHLORIDE. [Suspect]
     Active Substance: BUPIVACAINE HYDROCHLORIDE
     Indication: PLEURITIC PAIN
     Dosage: UNK (INTRATHECAL PAIN PUMP)
     Route: 037
  2. KETOROLAC [Concomitant]
     Active Substance: KETOROLAC TROMETHAMINE
     Dosage: 72 MILLIGRAM, DAILY(3MG/HOUR)
     Route: 048
  3. OMEPRAZOLE. [Concomitant]
     Active Substance: OMEPRAZOLE
     Indication: GASTROINTESTINAL DISORDER PROPHYLAXIS
     Dosage: UNK
     Route: 065
  4. KETOROLAC [Concomitant]
     Active Substance: KETOROLAC TROMETHAMINE
     Indication: PAIN
     Dosage: 91.2 MILLIGRAM, DAILY(3.8MG/HOUR)
     Route: 042
  5. HYDROMORPHONE [Suspect]
     Active Substance: HYDROMORPHONE
     Indication: PLEURITIC PAIN
     Dosage: UNK (INTRATHECAL PAIN PUMP)
     Route: 037
  6. CLONIDINE. [Suspect]
     Active Substance: CLONIDINE
     Indication: PLEURITIC PAIN
     Dosage: UNK (INTRATHECAL PAIN PUMP)
     Route: 037

REACTIONS (2)
  - Constipation [Unknown]
  - Sedation complication [Unknown]
